FAERS Safety Report 15711390 (Version 4)
Quarter: 2019Q2

REPORT INFORMATION
  Report Type: Report from Study
  Country: US (occurrence: US)
  Receive Date: 20181211
  Receipt Date: 20190524
  Transmission Date: 20190711
  Serious: Yes (Hospitalization, Other)
  Sender: FDA-Public Use
  Company Number: US-AMGEN INC.-USASP2018174399

PATIENT
  Age: 41 Year
  Sex: Female

DRUGS (1)
  1. AIMOVIG [Suspect]
     Active Substance: ERENUMAB-AOOE
     Indication: MIGRAINE PROPHYLAXIS
     Dosage: 70 MILLIGRAM, QMO
     Route: 065
     Dates: start: 20180923, end: 201810

REACTIONS (16)
  - Urinary tract infection [Unknown]
  - Sleep disorder [Unknown]
  - Hypoaesthesia [Unknown]
  - Muscular weakness [Unknown]
  - Drug hypersensitivity [Unknown]
  - Seizure [Unknown]
  - Blindness [Not Recovered/Not Resolved]
  - Malaise [Unknown]
  - Injection site pain [Unknown]
  - Balance disorder [Unknown]
  - Hepatic function abnormal [Unknown]
  - Renal impairment [Unknown]
  - Blood viscosity decreased [Unknown]
  - Musculoskeletal disorder [Unknown]
  - Muscle spasms [Not Recovered/Not Resolved]
  - Mobility decreased [Unknown]

NARRATIVE: CASE EVENT DATE: 2018
